FAERS Safety Report 13575996 (Version 1)
Quarter: 2017Q2

REPORT INFORMATION
  Report Type: Spontaneous
  Country: US (occurrence: US)
  Receive Date: 20170523
  Receipt Date: 20170523
  Transmission Date: 20170830
  Serious: No
  Sender: FDA-Public Use
  Company Number: None

PATIENT
  Age: 67 Year
  Sex: Female

DRUGS (1)
  1. IBRANCE [Suspect]
     Active Substance: PALBOCICLIB
     Indication: BREAST CANCER FEMALE
     Dosage: 75MG DAILY FOR 21 DAYS ON AND 7 DAYS OFF ORALLY
     Route: 048
     Dates: start: 20170425

REACTIONS (1)
  - Eye infection [None]

NARRATIVE: CASE EVENT DATE: 20170522
